FAERS Safety Report 8891222 (Version 2)
Quarter: 2012Q4

REPORT INFORMATION
  Report Type: 
  Country: US (occurrence: US)
  Receive Date: 20121107
  Receipt Date: 20121218
  Transmission Date: 20130627
  Serious: No
  Sender: FDA-Public Use
  Company Number: US-ASTRAZENECA-2012SE81776

PATIENT
  Age: 56 Year
  Sex: Male

DRUGS (3)
  1. ATACAND [Suspect]
     Route: 048
  2. LISINOPRIL [Suspect]
     Route: 048
  3. METOPROLOL [Concomitant]
     Indication: HYPERTENSION
     Route: 048

REACTIONS (5)
  - Blood pressure increased [Unknown]
  - Oedema [Unknown]
  - Malaise [Unknown]
  - Nasopharyngitis [Unknown]
  - Drug dose omission [Unknown]
